FAERS Safety Report 13036148 (Version 1)
Quarter: 2016Q4

REPORT INFORMATION
  Report Type: Spontaneous
  Country: US (occurrence: US)
  Receive Date: 20161216
  Receipt Date: 20161216
  Transmission Date: 20170207
  Serious: No
  Sender: FDA-Public Use
  Company Number: US-PERRIGO-16US014430

PATIENT
  Age: 66 Year
  Sex: Male
  Weight: 89.34 kg

DRUGS (1)
  1. BACITRACIN. [Suspect]
     Active Substance: BACITRACIN
     Indication: POSTOPERATIVE WOUND INFECTION
     Dosage: PIN HEAD SIZED AMOUNT, TID
     Route: 061
     Dates: start: 20160225, end: 20160228

REACTIONS (6)
  - Ocular hyperaemia [Recovering/Resolving]
  - Vision blurred [Recovered/Resolved]
  - Drug administered at inappropriate site [Recovered/Resolved]
  - Erythema [Recovering/Resolving]
  - Off label use [Recovered/Resolved]
  - Eye swelling [Recovered/Resolved]

NARRATIVE: CASE EVENT DATE: 20160225
